FAERS Safety Report 6092374-3 (Version None)
Quarter: 2009Q1

REPORT INFORMATION
  Report Type: 
  Country: None (occurrence: None)
  Receive Date: 20090223
  Receipt Date: 20090223
  Transmission Date: 20090719
  Serious: Yes (Life-Threatening, Hospitalization, Disabling)
  Sender: FDA-Public Use
  Company Number: None

PATIENT
  Age: 91 Year
  Sex: Female
  Weight: 62.1428 kg

DRUGS (1)
  1. VERAPAMIL [Suspect]
     Indication: BLOOD PRESSURE
     Dosage: 120MG 1 A DAY PO
     Route: 048
     Dates: start: 20050101, end: 20090203

REACTIONS (6)
  - EXTRASYSTOLES [None]
  - FEELING ABNORMAL [None]
  - HEART RATE DECREASED [None]
  - INCOHERENT [None]
  - INCORRECT DRUG ADMINISTRATION RATE [None]
  - PRODUCT QUALITY ISSUE [None]
